FAERS Safety Report 6532062-X (Version None)
Quarter: 2010Q1

REPORT INFORMATION
  Report Type: 
  Country: None (occurrence: None)
  Receive Date: 20100107
  Receipt Date: 20100107
  Transmission Date: 20100710
  Serious: Yes (Other)
  Sender: FDA-Public Use
  Company Number: None

PATIENT
  Sex: Female
  Weight: 102.5129 kg

DRUGS (1)
  1. CHANTIX [Suspect]
     Indication: NICOTINE DEPENDENCE

REACTIONS (6)
  - ANXIETY [None]
  - DEPRESSED MOOD [None]
  - FEELING ABNORMAL [None]
  - INSOMNIA [None]
  - PANIC REACTION [None]
  - THINKING ABNORMAL [None]
